FAERS Safety Report 9932421 (Version 1)
Quarter: 2014Q1

REPORT INFORMATION
  Report Type: Spontaneous
  Country: US (occurrence: None)
  Receive Date: 20140227
  Receipt Date: 20140227
  Transmission Date: 20141002
  Serious: Yes (Other)
  Sender: FDA-Public Use
  Company Number: None

PATIENT
  Age: 27 Year
  Sex: Female

DRUGS (1)
  1. MEFLOQUINE [Suspect]
     Indication: MALARIA PROPHYLAXIS
     Route: 048
     Dates: start: 20140120

REACTIONS (6)
  - Anxiety [None]
  - Decreased appetite [None]
  - Mood swings [None]
  - Paranoia [None]
  - Depression [None]
  - Panic attack [None]
